FAERS Safety Report 10369876 (Version 1)
Quarter: 2014Q3

REPORT INFORMATION
  Report Type: Spontaneous
  Country: FR (occurrence: FR)
  Receive Date: 20140808
  Receipt Date: 20140808
  Transmission Date: 20150326
  Serious: Yes (Life-Threatening)
  Sender: FDA-Public Use
  Company Number: FR-ROCHE-1446786

PATIENT
  Age: 8 Year
  Sex: Female

DRUGS (6)
  1. ZOPHREN [Concomitant]
     Active Substance: ONDANSETRON
  2. METHOTREXATE [Concomitant]
     Active Substance: METHOTREXATE
  3. VALIUM [Suspect]
     Active Substance: DIAZEPAM
     Indication: EPILEPSY
     Route: 042
     Dates: start: 20140723, end: 20140723
  4. ETOPOSIDE. [Concomitant]
     Active Substance: ETOPOSIDE
  5. IFOSFAMIDE. [Concomitant]
     Active Substance: IFOSFAMIDE
  6. PLITICAN [Concomitant]
     Active Substance: ALIZAPRIDE HYDROCHLORIDE

REACTIONS (1)
  - Respiratory arrest [Recovered/Resolved]

NARRATIVE: CASE EVENT DATE: 20140723
